FAERS Safety Report 23859648 (Version 1)
Quarter: 2024Q2

REPORT INFORMATION
  Report Type: Spontaneous
  Country: US (occurrence: None)
  Receive Date: 20240515
  Receipt Date: 20240515
  Transmission Date: 20240716
  Serious: Yes (Hospitalization)
  Sender: FDA-Public Use
  Company Number: None

PATIENT
  Age: 44 Year
  Sex: Male
  Weight: 85.5 kg

DRUGS (2)
  1. .DELTA.9-TETRAHYDROCANNABINOL\HERBALS [Suspect]
     Active Substance: .DELTA.9-TETRAHYDROCANNABINOL\HERBALS
     Indication: Sleep disorder
     Dates: start: 20240512, end: 20240512
  2. WELLBUTRIN [Concomitant]

REACTIONS (14)
  - Anxiety [None]
  - Anxiety [None]
  - Palpitations [None]
  - Respiratory rate increased [None]
  - Vomiting [None]
  - Incoherent [None]
  - Confusional state [None]
  - Gait disturbance [None]
  - Tremor [None]
  - Chest discomfort [None]
  - Chest pain [None]
  - Product formulation issue [None]
  - Impaired work ability [None]
  - Unintentional use for unapproved indication [None]

NARRATIVE: CASE EVENT DATE: 20240512
